FAERS Safety Report 24546563 (Version 1)
Quarter: 2024Q4

REPORT INFORMATION
  Report Type: Spontaneous
  Country: US (occurrence: US)
  Receive Date: 20241024
  Receipt Date: 20241024
  Transmission Date: 20250115
  Serious: Yes (Other)
  Sender: VERTEX
  Company Number: US-VERTEX PHARMACEUTICALS-2024-016647

PATIENT
  Sex: Female

DRUGS (3)
  1. ELEXACAFTOR\IVACAFTOR\TEZACAFTOR [Suspect]
     Active Substance: ELEXACAFTOR\IVACAFTOR\TEZACAFTOR
     Indication: Cystic fibrosis
     Dosage: UNKNOWN DOSAGE REGIMEN
     Route: 048
     Dates: start: 2022
  2. ELEXACAFTOR\IVACAFTOR\TEZACAFTOR [Suspect]
     Active Substance: ELEXACAFTOR\IVACAFTOR\TEZACAFTOR
     Dosage: LOWERED DOSES
     Route: 048
  3. ELEXACAFTOR\IVACAFTOR\TEZACAFTOR [Suspect]
     Active Substance: ELEXACAFTOR\IVACAFTOR\TEZACAFTOR
     Dosage: SWITCHING DOSES AROUND PEDIATRIC DOSES
     Route: 048
     Dates: end: 2022

REACTIONS (18)
  - Transient ischaemic attack [Unknown]
  - Facial paralysis [Unknown]
  - Anxiety [Unknown]
  - Panic attack [Unknown]
  - Heart rate increased [Unknown]
  - Agoraphobia [Unknown]
  - Mood swings [Unknown]
  - Headache [Unknown]
  - Migraine [Unknown]
  - Middle insomnia [Unknown]
  - Crying [Unknown]
  - Hypoaesthesia [Unknown]
  - Mental fatigue [Unknown]
  - Sleep terror [Unknown]
  - Tuberculosis [Unknown]
  - Fear [Unknown]
  - Anger [Unknown]
  - Depressed mood [Unknown]

NARRATIVE: CASE EVENT DATE: 20220101
